FAERS Safety Report 9211603 (Version 1)
Quarter: 2013Q2

REPORT INFORMATION
  Report Type: Spontaneous
  Country: US (occurrence: US)
  Receive Date: 20130404
  Receipt Date: 20130404
  Transmission Date: 20140414
  Serious: No
  Sender: FDA-Public Use
  Company Number: US-AMGEN-USASP2013019636

PATIENT
  Age: 50 Year
  Sex: Female

DRUGS (4)
  1. ENBREL [Suspect]
     Indication: RHEUMATOID ARTHRITIS
     Dosage: 50 MG, QWK
     Dates: start: 19980119
  2. ORENCIA [Concomitant]
     Dosage: UNK
     Dates: start: 201001
  3. ANAKINRA [Concomitant]
     Dosage: UNK
     Dates: start: 201001
  4. HUMIRA [Concomitant]
     Dosage: UNK
     Dates: start: 201001

REACTIONS (3)
  - Erythema [Recovered/Resolved]
  - Joint swelling [Recovered/Resolved]
  - Joint warmth [Recovered/Resolved]
